FAERS Safety Report 7600943-1 (Version None)
Quarter: 2011Q3

REPORT INFORMATION
  Report Type: 
  Country: None (occurrence: None)
  Receive Date: 20110711
  Receipt Date: 20110627
  Transmission Date: 20111222
  Serious: Yes (Hospitalization)
  Sender: FDA-Public Use
  Company Number: FR-GENENTECH-305718

PATIENT
  Sex: Female
  Weight: 52 kg

DRUGS (1)
  1. RITUXAN [Suspect]
     Indication: SJOGREN'S SYNDROME
     Dosage: 1 G, Q15D
     Route: 042
     Dates: start: 20100506, end: 20100519

REACTIONS (1)
  - RENAL FAILURE [None]
